FAERS Safety Report 7626346-1 (Version None)
Quarter: 2011Q3

REPORT INFORMATION
  Report Type: 
  Country: None (occurrence: None)
  Receive Date: 20110721
  Receipt Date: 20110719
  Transmission Date: 20111222
  Serious: Yes (Other)
  Sender: FDA-Public Use
  Company Number: JP-PFIZER INC-2011164100

PATIENT
  Age: 84 Year
  Sex: Female
  Weight: 58 kg

DRUGS (6)
  1. LYRICA [Suspect]
     Indication: BACK PAIN
     Dosage: 75 MG, 2X/DAY
     Route: 048
     Dates: start: 20110531, end: 20110604
  2. AMARYL [Concomitant]
     Dosage: 0.5 MG, 1X/DAY
     Route: 048
  3. TRICHLORMETHIAZIDE [Concomitant]
     Dosage: 2 MG, 1X/DAY
     Route: 048
  4. NIFEDIPINE [Concomitant]
     Dosage: 20 MG, 1X/DAY
     Route: 048
  5. VALSARTAN [Concomitant]
     Dosage: 80 MG, 1X/DAY
     Route: 048
  6. ALOGLIPTIN BENZOATE [Concomitant]
     Dosage: 25 MG, 1X/DAY
     Route: 048

REACTIONS (4)
  - CARDIAC FAILURE [None]
  - LOSS OF CONSCIOUSNESS [None]
  - FALL [None]
  - WEIGHT INCREASED [None]
